FAERS Safety Report 8899450 (Version 1)
Quarter: 2012Q4

REPORT INFORMATION
  Report Type: 
  Country: US (occurrence: US)
  Receive Date: 20121108
  Receipt Date: 20121108
  Transmission Date: 20130627
  Serious: No
  Sender: FDA-Public Use
  Company Number: US-AMGEN-USASP2012035991

PATIENT
  Sex: Female

DRUGS (1)
  1. ENBREL [Suspect]
     Indication: RHEUMATOID ARTHRITIS
     Dosage: 50 mg, qwk
     Dates: start: 200710

REACTIONS (6)
  - Increased tendency to bruise [Unknown]
  - Blood blister [Unknown]
  - Injury [Unknown]
  - Swelling [Unknown]
  - Haemorrhage [Unknown]
  - Hypersensitivity [Unknown]
